FAERS Safety Report 7249601-6 (Version None)
Quarter: 2011Q1

REPORT INFORMATION
  Report Type: 
  Country: None (occurrence: None)
  Receive Date: 20110128
  Receipt Date: 20101216
  Transmission Date: 20110831
  Serious: Yes (Hospitalization, Other)
  Sender: FDA-Public Use
  Company Number: US-BAYER-201026320NA

PATIENT
  Sex: Female
  Weight: 109.9 kg

DRUGS (12)
  1. ALBUTEROL INHALER [Concomitant]
     Indication: ASTHMA
     Route: 055
     Dates: start: 20020101, end: 20070101
  2. FLOVENT [Concomitant]
     Route: 055
     Dates: start: 20080204
  3. FLEXERIL [Concomitant]
     Indication: MUSCLE SPASMS
     Dosage: 10 MG (DAILY DOSE), TID, ORAL
     Route: 048
     Dates: start: 20070525
  4. TRINESSA [Concomitant]
     Indication: CONTRACEPTION
     Dates: start: 20080901
  5. FLOVENT [Concomitant]
     Route: 055
     Dates: start: 20080204
  6. FLOVENT [Concomitant]
     Indication: ASTHMA
     Route: 055
     Dates: start: 20020101, end: 20070101
  7. IMITREX [Concomitant]
     Indication: MIGRAINE
     Dates: start: 20080101, end: 20100101
  8. IBUPROFEN [Concomitant]
     Indication: PAIN
     Dosage: 600 MG (DAILY DOSE), TID, ORAL
     Route: 048
     Dates: start: 20070525
  9. YASMIN [Suspect]
     Indication: CONTRACEPTION
     Route: 048
     Dates: start: 20071127, end: 20080618
  10. ALBUTEROL INHALER [Concomitant]
     Route: 055
     Dates: start: 20080204
  11. ASCORBIC ACID [Concomitant]
     Dates: start: 20000101, end: 20100101
  12. ALBUTEROL INHALER [Concomitant]
     Route: 055
     Dates: start: 20080204

REACTIONS (6)
  - GALLBLADDER CHOLESTEROLOSIS [None]
  - VOMITING [None]
  - GALLBLADDER NON-FUNCTIONING [None]
  - ABDOMINAL PAIN UPPER [None]
  - CHOLECYSTITIS CHRONIC [None]
  - NAUSEA [None]
